FAERS Safety Report 6931674-9 (Version None)
Quarter: 2010Q3

REPORT INFORMATION
  Report Type: 
  Country: None (occurrence: None)
  Receive Date: 20100813
  Receipt Date: 20100702
  Transmission Date: 20110219
  Serious: Yes (Other)
  Sender: FDA-Public Use
  Company Number: 1000014877

PATIENT
  Age: 54 Year
  Sex: Female

DRUGS (8)
  1. SAVELLA [Suspect]
     Indication: FIBROMYALGIA
     Dosage: 12.5 MG (12.5 MG,1 IN 1 D),ORAL; 25 MG (12.5 MG,2 IN 1 D), ORAL; 50 MG (25MG,2 IN 1 D), ORAL; 100 MG
     Route: 048
     Dates: start: 20100507, end: 20100507
  2. SAVELLA [Suspect]
     Indication: FIBROMYALGIA
     Dosage: 12.5 MG (12.5 MG,1 IN 1 D),ORAL; 25 MG (12.5 MG,2 IN 1 D), ORAL; 50 MG (25MG,2 IN 1 D), ORAL; 100 MG
     Route: 048
     Dates: start: 20100508, end: 20100509
  3. SAVELLA [Suspect]
     Indication: FIBROMYALGIA
     Dosage: 12.5 MG (12.5 MG,1 IN 1 D),ORAL; 25 MG (12.5 MG,2 IN 1 D), ORAL; 50 MG (25MG,2 IN 1 D), ORAL; 100 MG
     Route: 048
     Dates: start: 20100510, end: 20100513
  4. SAVELLA [Suspect]
     Indication: FIBROMYALGIA
     Dosage: 12.5 MG (12.5 MG,1 IN 1 D),ORAL; 25 MG (12.5 MG,2 IN 1 D), ORAL; 50 MG (25MG,2 IN 1 D), ORAL; 100 MG
     Route: 048
     Dates: start: 20100514, end: 20100623
  5. SAVELLA [Suspect]
     Indication: FIBROMYALGIA
     Dosage: 150 MG (75 MG,2 ON 1 D), ORAL
     Route: 048
     Dates: start: 20100624, end: 20100626
  6. LOTREL [Concomitant]
  7. ZOCOR [Concomitant]
  8. ULTRAM [Concomitant]

REACTIONS (1)
  - RENAL FAILURE ACUTE [None]
